FAERS Safety Report 18924549 (Version 1)
Quarter: 2021Q1

REPORT INFORMATION
  Report Type: Report from Study
  Country: GB (occurrence: GB)
  Receive Date: 20210222
  Receipt Date: 20210222
  Transmission Date: 20210420
  Serious: Yes (Hospitalization)
  Sender: FDA-Public Use
  Company Number: GB-CELGENEUS-GBR-20210204306

PATIENT
  Sex: Female
  Weight: 51.9 kg

DRUGS (8)
  1. PENICILLIN [Concomitant]
     Active Substance: PENICILLIN
     Indication: PROPHYLAXIS
     Dosage: 2500
     Route: 065
     Dates: start: 20200921
  2. NOZUKA [Concomitant]
     Indication: PROPHYLAXIS
     Dosage: 625
     Route: 065
     Dates: start: 20201009
  3. CICLOSPORIN [Concomitant]
     Active Substance: CYCLOSPORINE
     Indication: IMMUNOSUPPRESSION
     Dosage: 500
     Route: 065
     Dates: start: 20210210
  4. AZACITIDINE ORAL (CC?486) [Suspect]
     Active Substance: AZACITIDINE
     Indication: ACUTE MYELOID LEUKAEMIA
     Dosage: 200 MILLIGRAM
     Route: 048
     Dates: start: 20201125, end: 20210202
  5. LANSOPRAZOLE. [Concomitant]
     Active Substance: LANSOPRAZOLE
     Indication: PROPHYLAXIS
     Dosage: 300
     Route: 065
     Dates: start: 20200825
  6. CETIRIZINE [Concomitant]
     Active Substance: CETIRIZINE HYDROCHLORIDE
     Indication: PRURITUS
     Dosage: 100
     Route: 065
     Dates: start: 20210210
  7. ACYCLOVIR. [Concomitant]
     Active Substance: ACYCLOVIR
     Indication: PROPHYLAXIS
     Dosage: 400
     Route: 065
     Dates: start: 20200825
  8. COTRUMAOXAZOLE [Concomitant]
     Indication: PROPHYLAXIS
     Dosage: 4800
     Route: 065
     Dates: start: 20200916

REACTIONS (1)
  - Pyrexia [Not Recovered/Not Resolved]

NARRATIVE: CASE EVENT DATE: 20210214
